FAERS Safety Report 15540981 (Version 2)
Quarter: 2018Q4

REPORT INFORMATION
  Report Type: Spontaneous
  Country: FI (occurrence: FI)
  Receive Date: 20181023
  Receipt Date: 20181121
  Transmission Date: 20190205
  Serious: Yes (Hospitalization, Other)
  Sender: FDA-Public Use
  Company Number: PHHY2018FI130203

PATIENT
  Age: 52 Year
  Sex: Female

DRUGS (6)
  1. TAFINLAR [Suspect]
     Active Substance: DABRAFENIB MESYLATE
     Indication: MALIGNANT MELANOMA
     Dosage: 150 MG, BID
     Route: 065
     Dates: start: 20180814, end: 20181011
  2. MEKINIST [Suspect]
     Active Substance: TRAMETINIB DIMETHYL SULFOXIDE
     Indication: MALIGNANT MELANOMA
     Dosage: 2 MG, QD
     Route: 065
     Dates: start: 20180831, end: 20181011
  3. MEKINIST [Suspect]
     Active Substance: TRAMETINIB DIMETHYL SULFOXIDE
     Dosage: 1.5 MG, QD
     Route: 065
     Dates: start: 20181024, end: 20181107
  4. MEKINIST [Suspect]
     Active Substance: TRAMETINIB DIMETHYL SULFOXIDE
     Dosage: 2 MG, QD
     Route: 065
     Dates: start: 20181107
  5. TAFINLAR [Suspect]
     Active Substance: DABRAFENIB MESYLATE
     Dosage: 100 MG, BID
     Route: 065
     Dates: start: 20181024, end: 20181107
  6. TAFINLAR [Suspect]
     Active Substance: DABRAFENIB MESYLATE
     Dosage: 150 MG, BID
     Route: 065
     Dates: start: 20181107

REACTIONS (8)
  - Eosinophilia [Recovered/Resolved]
  - Swelling face [Recovered/Resolved]
  - Aphthous ulcer [Recovered/Resolved]
  - Pyrexia [Recovered/Resolved]
  - Eczema [Recovered/Resolved]
  - Upper respiratory tract infection [Unknown]
  - Drug reaction with eosinophilia and systemic symptoms [Unknown]
  - Rash pruritic [Recovered/Resolved]

NARRATIVE: CASE EVENT DATE: 201810
